FAERS Safety Report 16834726 (Version 1)
Quarter: 2019Q3

REPORT INFORMATION
  Report Type: Spontaneous
  Country: US (occurrence: US)
  Receive Date: 20190920
  Receipt Date: 20190920
  Transmission Date: 20191005
  Serious: No
  Sender: FDA-Public Use
  Company Number: US-PFIZER INC-2019407283

PATIENT
  Age: 86 Year
  Sex: Female

DRUGS (12)
  1. ATARAX [Suspect]
     Active Substance: HYDROXYZINE HYDROCHLORIDE
     Dosage: UNK
  2. CODEINE [Suspect]
     Active Substance: CODEINE
     Dosage: UNK
  3. HYDROXYZINE HCL [Suspect]
     Active Substance: HYDROXYZINE HYDROCHLORIDE
     Dosage: UNK (25M)
  4. DARVOCET [Suspect]
     Active Substance: ACETAMINOPHEN\PROPOXYPHENE HYDROCHLORIDE
     Dosage: UNK
  5. DILANTIN [Suspect]
     Active Substance: PHENYTOIN
     Dosage: UNK
  6. NITRO-DUR [Suspect]
     Active Substance: NITROGLYCERIN
     Dosage: UNK
  7. NEOSPORIN [Suspect]
     Active Substance: BACITRACIN ZINC\NEOMYCIN SULFATE\POLYMYXIN B SULFATE
     Dosage: UNK
  8. OXYTROL [Suspect]
     Active Substance: OXYBUTYNIN
     Dosage: UNK
  9. NAPROXEN. [Suspect]
     Active Substance: NAPROXEN
     Dosage: UNK
  10. ASACOL [Suspect]
     Active Substance: MESALAMINE
     Dosage: UNK
  11. DARVON [Suspect]
     Active Substance: PROPOXYPHENE HYDROCHLORIDE
     Dosage: UNK
  12. DOLOBID [Suspect]
     Active Substance: DIFLUNISAL
     Dosage: UNK

REACTIONS (1)
  - Drug hypersensitivity [Unknown]
